FAERS Safety Report 25602541 (Version 1)
Quarter: 2025Q3

REPORT INFORMATION
  Report Type: Spontaneous
  Country: AR (occurrence: AR)
  Receive Date: 20250724
  Receipt Date: 20250724
  Transmission Date: 20251020
  Serious: Yes (Other)
  Sender: ROCHE
  Company Number: AR-BoehringerIngelheim-2025-BI-083897

PATIENT
  Age: 76 Year
  Sex: Female

DRUGS (1)
  1. METALYSE [Suspect]
     Active Substance: TENECTEPLASE
     Indication: Ischaemic stroke
     Route: 042
     Dates: start: 20250717, end: 20250717

REACTIONS (3)
  - Stevens-Johnson syndrome [Recovering/Resolving]
  - Hypersensitivity [Recovering/Resolving]
  - Oropharyngeal oedema [Recovering/Resolving]

NARRATIVE: CASE EVENT DATE: 20250717
